FAERS Safety Report 18347291 (Version 1)
Quarter: 2020Q4

REPORT INFORMATION
  Report Type: Spontaneous
  Country: KZ (occurrence: KZ)
  Receive Date: 20201006
  Receipt Date: 20201006
  Transmission Date: 20210114
  Serious: Yes (Hospitalization, Other)
  Sender: FDA-Public Use
  Company Number: KZ-IPCA LABORATORIES LIMITED-IPC-2020-KZ-003164

PATIENT

DRUGS (4)
  1. ALLOPURINOL TABLET [Suspect]
     Active Substance: ALLOPURINOL
     Indication: GOUT
     Dosage: 50 MILLIGRAM, HS
     Route: 065
  2. ALLOPURINOL TABLET [Suspect]
     Active Substance: ALLOPURINOL
     Dosage: 100 MILLIGRAM, QD (EVERY OTHER DAY)
     Route: 065
  3. ALLOPURINOL TABLET [Suspect]
     Active Substance: ALLOPURINOL
     Dosage: UNK MILLIGRAM (100-150)
     Route: 065
  4. ALLOPURINOL TABLET [Suspect]
     Active Substance: ALLOPURINOL
     Dosage: 50 MILLIGRAM, QD (EVERY OTHER DAY)
     Route: 065

REACTIONS (14)
  - Vascular encephalopathy [Unknown]
  - Gouty tophus [Unknown]
  - Underdose [Unknown]
  - Chronic kidney disease [Unknown]
  - Drug ineffective [Unknown]
  - Urate nephropathy [Unknown]
  - Gout [Unknown]
  - Disease recurrence [Unknown]
  - Nephrolithiasis [Unknown]
  - Tubulointerstitial nephritis [Unknown]
  - Medication error [Unknown]
  - Condition aggravated [Unknown]
  - Hypertension [Unknown]
  - Left ventricular hypertrophy [Unknown]
